FAERS Safety Report 25214159 (Version 1)
Quarter: 2025Q2

REPORT INFORMATION
  Report Type: Spontaneous
  Country: DE (occurrence: DE)
  Receive Date: 20250418
  Receipt Date: 20250418
  Transmission Date: 20250717
  Serious: Yes (Other)
  Sender: PFIZER
  Company Number: DE-ASTELLAS-2025-AER-014282

PATIENT
  Sex: Male

DRUGS (46)
  1. FLUCONAZOLE [Suspect]
     Active Substance: FLUCONAZOLE
     Indication: Antifungal treatment
     Route: 048
     Dates: end: 20250213
  2. XOSPATA [Suspect]
     Active Substance: GILTERITINIB
     Indication: Acute myeloid leukaemia
     Dosage: 120 MG, 1X/DAY
     Dates: start: 20250205, end: 202502
  3. XOSPATA [Suspect]
     Active Substance: GILTERITINIB
     Indication: FLT3 gene mutation
     Dosage: AS A SINGLE DOSE IN THE MORNING, 40 MG 5-0-0INCREASED DOSE
     Route: 065
     Dates: start: 20250227, end: 20250315
  4. XOSPATA [Suspect]
     Active Substance: GILTERITINIB
     Indication: NPM1 gene mutation
  5. XOSPATA [Suspect]
     Active Substance: GILTERITINIB
     Indication: Myelofibrosis
  6. CYTARABINE [Suspect]
     Active Substance: CYTARABINE
     Indication: Acute myeloid leukaemia
     Route: 065
     Dates: start: 202409
  7. CYTARABINE [Suspect]
     Active Substance: CYTARABINE
     Route: 065
     Dates: start: 20250304, end: 20250309
  8. ACYCLOVIR [Suspect]
     Active Substance: ACYCLOVIR
     Indication: Antiviral treatment
     Route: 048
     Dates: end: 20250213
  9. PIPERACILLIN SODIUM\TAZOBACTAM SODIUM [Suspect]
     Active Substance: PIPERACILLIN SODIUM\TAZOBACTAM SODIUM
     Indication: Antibiotic therapy
     Route: 065
     Dates: start: 20250219
  10. HYDROXYUREA [Concomitant]
     Active Substance: HYDROXYUREA
     Indication: Acute myeloid leukaemia
     Route: 065
     Dates: start: 20240921
  11. HYDROXYUREA [Concomitant]
     Active Substance: HYDROXYUREA
     Route: 065
     Dates: start: 20250206, end: 20250207
  12. HYDROXYUREA [Concomitant]
     Active Substance: HYDROXYUREA
     Route: 065
     Dates: start: 20250317, end: 20250319
  13. HYDROXYUREA [Concomitant]
     Active Substance: HYDROXYUREA
     Dosage: UNK, 2X/DAY (2 IN THE MORNING AND 2 IN THE EVENING)
     Route: 065
  14. ALBUMIN HUMAN [Concomitant]
     Active Substance: ALBUMIN HUMAN
     Indication: Coagulopathy
     Route: 065
  15. TINZAPARIN [Concomitant]
     Active Substance: TINZAPARIN
     Indication: Anticoagulant therapy
     Route: 058
  16. ALLOPURINOL [Concomitant]
     Active Substance: ALLOPURINOL
     Dosage: 08:00 IN THE MORNINGWITH PLENTY OF LIQUID AFTER MEALS
     Route: 048
  17. SODIUM BICARBONATE [Concomitant]
     Active Substance: SODIUM BICARBONATE
     Dosage: 1 G, 3X/DAY
     Route: 065
  18. RASBURICASE [Concomitant]
     Active Substance: RASBURICASE
     Route: 065
  19. HUMAN RED BLOOD CELL [Concomitant]
     Active Substance: HUMAN RED BLOOD CELL
     Route: 065
  20. PLATELETS [Concomitant]
     Active Substance: HUMAN PLATELET, ALLOGENIC
     Route: 065
  21. HALDOL [Concomitant]
     Active Substance: HALOPERIDOL
     Route: 048
  22. HYDROMORPHON HEXAL [Concomitant]
     Dosage: 2 MG, 2X/DAY
     Route: 048
  23. LERCANIDIPINE HYDROCHLORIDE [Concomitant]
     Active Substance: LERCANIDIPINE HYDROCHLORIDE
     Dosage: 12:00 AT THE MIDDAY TIME
     Route: 048
  24. POLYETHYLENE GLYCOL 3350\POTASSIUM CHLORIDE\SODIUM BICARBONATE\SODIUM [Concomitant]
     Active Substance: POLYETHYLENE GLYCOL 3350\POTASSIUM CHLORIDE\SODIUM BICARBONATE\SODIUM CHLORIDE
     Dosage: 13.7 G, 1X/DAY (08:00)
     Route: 048
  25. METAMIZOLE [Concomitant]
     Active Substance: METAMIZOLE
     Dosage: 500 MG, 4X/DAY
     Route: 048
  26. METAMIZOLE [Concomitant]
     Active Substance: METAMIZOLE
     Dosage: UNK, 3X/DAY
     Route: 065
  27. METOPROLOL SUCCINATE [Concomitant]
     Active Substance: METOPROLOL SUCCINATE
     Dosage: 47.5 MG, 2X/DAY
     Route: 048
  28. SODIUM BICARBONATE [Concomitant]
     Active Substance: SODIUM BICARBONATE
     Dosage: 1 G, 4X/DAY (08:00/12:00/16:00/20:00)
     Route: 048
  29. NYSTADERM [Concomitant]
     Dosage: 1 G, 4X/DAY (100.000 IE 08:00/12:00/16:00/20:00)
     Route: 048
  30. RIVAROXABAN [Concomitant]
     Active Substance: RIVAROXABAN
     Indication: Thrombosis prophylaxis
     Dosage: 15 MG, 1X/DAY (08:00)
     Route: 048
  31. FUROSEMIDE [Concomitant]
     Active Substance: FUROSEMIDE
     Dosage: 2 ML, 2X/DAY (20 MG IN 2 ML READY TO USE SOLUTION 08:00/14:00)
     Route: 042
  32. PANTOPRAZOL DURA [Concomitant]
     Dosage: 100 ML, 2X/DAY
     Route: 042
  33. PRONTORAL [Concomitant]
     Dosage: 1.5 MG/G, 4X/DAY
     Route: 065
  34. RIOPAN MAGEN GEL [Concomitant]
     Dosage: UNK UNK, 3X/DAY
     Route: 048
  35. TORSEMIDE [Concomitant]
     Active Substance: TORSEMIDE
     Dosage: UNK UNK, 1X/DAY
     Route: 065
  36. MORPHINE SULFATE [Concomitant]
     Active Substance: MORPHINE SULFATE
     Indication: Pain
     Route: 048
  37. ACETAMINOPHEN [Concomitant]
     Active Substance: ACETAMINOPHEN
     Indication: Pyrexia
     Dosage: UNK UNK, DAILY (1000 MG/100 MLIF REQUIRED DAILY DOSE)
     Route: 065
  38. SODIUM CHLORIDE [Concomitant]
     Active Substance: SODIUM CHLORIDE
     Indication: Vehicle solution use
     Route: 065
  39. SODIUM CHLORIDE [Concomitant]
     Active Substance: SODIUM CHLORIDE
     Dosage: 100 ML, 2X/DAY (PANTOPRAZOLE DURA)
     Route: 042
  40. ALBUTEROL [Concomitant]
     Active Substance: ALBUTEROL
     Route: 055
  41. IPRATROPIUM BROMIDE [Concomitant]
     Active Substance: IPRATROPIUM BROMIDE
     Route: 065
  42. DIHYDRALAZINE [Concomitant]
     Active Substance: DIHYDRALAZINE
     Route: 040
  43. POTASSIUM CHLORIDE [Concomitant]
     Active Substance: POTASSIUM CHLORIDE
     Indication: Mineral supplementation
     Dosage: UNK UNK, 1X/DAY
     Route: 042
  44. ONDANSETRON [Concomitant]
     Active Substance: ONDANSETRON
     Indication: Nausea
     Route: 040
  45. ONDANSETRON [Concomitant]
     Active Substance: ONDANSETRON
     Indication: Vomiting
  46. URAPIDIL [Concomitant]
     Active Substance: URAPIDIL
     Route: 040

REACTIONS (24)
  - Multiple organ dysfunction syndrome [Unknown]
  - Acute kidney injury [Unknown]
  - Tumour lysis syndrome [Unknown]
  - Disseminated intravascular coagulation [Unknown]
  - Hepatotoxicity [Recovering/Resolving]
  - Electrocardiogram QT prolonged [Unknown]
  - Differentiation syndrome [Unknown]
  - Myelosuppression [Unknown]
  - Osteochondrosis [Unknown]
  - Lumbar vertebral fracture [Unknown]
  - Urinary tract infection enterococcal [Unknown]
  - Enterococcal infection [Unknown]
  - Pulmonary congestion [Unknown]
  - White blood cell count decreased [Recovered/Resolved]
  - Periorbital oedema [Recovering/Resolving]
  - Hypercalcaemia [Unknown]
  - Hyperphosphataemia [Unknown]
  - Pleural effusion [Unknown]
  - White blood cell count increased [Unknown]
  - Intervertebral disc protrusion [Unknown]
  - Bone pain [Recovering/Resolving]
  - Lung infiltration [Unknown]
  - Eye swelling [Recovering/Resolving]
  - Ocular hyperaemia [Recovering/Resolving]

NARRATIVE: CASE EVENT DATE: 20250307
